FAERS Safety Report 25233449 (Version 1)
Quarter: 2025Q2

REPORT INFORMATION
  Report Type: Spontaneous
  Country: JP (occurrence: JP)
  Receive Date: 20250424
  Receipt Date: 20250424
  Transmission Date: 20250716
  Serious: Yes (Death, Hospitalization, Other)
  Sender: GENMAB
  Company Number: JP-GENMAB-2025-01009

PATIENT
  Age: 71 Year
  Sex: Female

DRUGS (1)
  1. EPKINLY [Suspect]
     Active Substance: EPCORITAMAB-BYSP
     Indication: Diffuse large B-cell lymphoma recurrent
     Route: 065
     Dates: start: 202406, end: 2024

REACTIONS (6)
  - Haemophagocytic lymphohistiocytosis [Unknown]
  - Splenomegaly [Unknown]
  - Liver disorder [Unknown]
  - Full blood count decreased [Unknown]
  - Coagulopathy [Unknown]
  - Diffuse large B-cell lymphoma recurrent [Fatal]

NARRATIVE: CASE EVENT DATE: 20240101
